FAERS Safety Report 4678612-X (Version None)
Quarter: 2005Q2

REPORT INFORMATION
  Report Type: 
  Country: None (occurrence: None)
  Receive Date: 20050601
  Receipt Date: 20050523
  Transmission Date: 20051028
  Serious: Yes (Hospitalization)
  Sender: FDA-Public Use
  Company Number: PHRM2005FR01650

PATIENT
  Age: 59 Year
  Sex: Female
  Weight: 85 kg

DRUGS (8)
  1. ESIDRIX [Suspect]
     Indication: HYPERTENSION
     Dosage: 12.5 MG, QD
     Route: 048
     Dates: start: 19950101, end: 20050314
  2. LIVIAL [Concomitant]
     Dosage: UNK, UNK
     Route: 048
     Dates: start: 20020101
  3. XENICAL [Suspect]
     Indication: OBESITY
     Dosage: 1 DF, QD
     Route: 048
     Dates: start: 20050201, end: 20050301
  4. OMEPRAZOLE [Suspect]
     Dosage: 20 MG, QD
     Route: 048
     Dates: start: 20040101, end: 20050314
  5. AMLOR [Concomitant]
     Indication: HYPERTENSION
     Route: 048
     Dates: start: 19950101
  6. PLAQUENIL [Concomitant]
     Indication: SYSTEMIC LUPUS ERYTHEMATOSUS
  7. FOSAMAX [Concomitant]
     Route: 048
  8. HERBAL PREPARATION (ERNST RICHTER) [Suspect]
     Indication: CONSTIPATION
     Route: 048
     Dates: start: 20050201, end: 20050314

REACTIONS (6)
  - ABDOMINAL PAIN UPPER [None]
  - ALANINE AMINOTRANSFERASE INCREASED [None]
  - ASPARTATE AMINOTRANSFERASE INCREASED [None]
  - CONSTIPATION [None]
  - HEPATITIS [None]
  - OBESITY [None]
